FAERS Safety Report 5588158-2 (Version None)
Quarter: 2008Q1

REPORT INFORMATION
  Report Type: 
  Country: None (occurrence: None)
  Receive Date: 20080108
  Receipt Date: 20071227
  Transmission Date: 20080703
  Serious: Yes (Hospitalization, Other)
  Sender: FDA-Public Use
  Company Number: 18127

PATIENT
  Age: 66 Year
  Sex: Male
  Weight: 65 kg

DRUGS (7)
  1. METHOTREXATE [Suspect]
  2. REMICADE [Suspect]
     Indication: ANKYLOSING SPONDYLITIS
     Dosage: 325 MG FREQ UNK IV
     Route: 042
     Dates: start: 20030915, end: 20031022
  3. AMITRIPTYLINE HCL [Concomitant]
  4. ANUSOL [Concomitant]
  5. ESOMEPRAZOLE [Concomitant]
  6. INDOMETHACIN [Concomitant]
  7. NIFEDIPINE [Concomitant]

REACTIONS (2)
  - EPSTEIN-BARR VIRUS TEST POSITIVE [None]
  - LYMPHOPROLIFERATIVE DISORDER [None]
